FAERS Safety Report 17445406 (Version 2)
Quarter: 2022Q4

REPORT INFORMATION
  Report Type: Spontaneous
  Country: DE (occurrence: DE)
  Receive Date: 20200221
  Receipt Date: 20221116
  Transmission Date: 20230113
  Serious: Yes (Other)
  Sender: FDA-Public Use
  Company Number: DE-NOVARTISPH-NVSC2020DE043040

PATIENT
  Age: 27 Year
  Sex: Female
  Weight: 79.5 kg

DRUGS (4)
  1. QUETIAPINE [Suspect]
     Active Substance: QUETIAPINE
     Indication: Schizophrenia
     Dosage: 600 MG, QD  (BIS 150 MG/D)
     Route: 048
     Dates: start: 20181012, end: 20190720
  2. BROMOCRIPTINE [Concomitant]
     Active Substance: BROMOCRIPTINE
     Indication: Hyperprolactinaemia
     Dosage: 3.75 MG, QD (BIS 1.25 MG/D)
     Route: 048
     Dates: start: 20181012, end: 20181204
  3. FOLIC ACID [Concomitant]
     Active Substance: FOLIC ACID
     Indication: Prophylaxis of neural tube defect
     Dosage: UNK
     Route: 048
     Dates: start: 20181204, end: 20190720
  4. FLUPHENAZINE [Concomitant]
     Active Substance: FLUPHENAZINE
     Indication: Schizophrenia
     Dosage: 25 MG, QD (ALLE 2 WK)
     Route: 030
     Dates: start: 20181018, end: 20181018

REACTIONS (2)
  - Gestational diabetes [Recovered/Resolved]
  - Exposure during pregnancy [Unknown]
